FAERS Safety Report 4522057-X (Version None)
Quarter: 2004Q4

REPORT INFORMATION
  Report Type: 
  Country: None (occurrence: None)
  Receive Date: 20041206
  Receipt Date: 20041123
  Transmission Date: 20050328
  Serious: Yes (Other)
  Sender: FDA-Public Use
  Company Number: 2004098775

PATIENT
  Age: 42 Year
  Sex: Male

DRUGS (3)
  1. HYDROCORTISONE [Suspect]
     Indication: ILL-DEFINED DISORDER
     Dosage: TOPICAL
     Route: 061
  2. BETAMETHASONE [Suspect]
     Indication: ILL-DEFINED DISORDER
     Dosage: TOPICAL
     Route: 061
  3. TIMOLOL MALEATE [Suspect]
     Indication: ILL-DEFINED DISORDER
     Dosage: OPHTHALMIC
     Route: 047

REACTIONS (5)
  - ASTHMA [None]
  - CONDITION AGGRAVATED [None]
  - ECZEMA [None]
  - GLAUCOMA [None]
  - THERAPY NON-RESPONDER [None]
